FAERS Safety Report 7743077-8 (Version None)
Quarter: 2011Q3

REPORT INFORMATION
  Report Type: 
  Country: None (occurrence: None)
  Receive Date: 20110912
  Receipt Date: 20110902
  Transmission Date: 20111222
  Serious: Yes (Hospitalization, Other)
  Sender: FDA-Public Use
  Company Number: BR-ROCHE-791761

PATIENT
  Sex: Female
  Weight: 83 kg

DRUGS (5)
  1. NIMESULIDE [Concomitant]
  2. TOCILIZUMAB [Suspect]
     Dosage: FORM: INFUSION
     Route: 042
     Dates: start: 20110621, end: 20110701
  3. PREDNISONE [Concomitant]
     Dosage: BRAND: METICORTEN
  4. OMEPRAZOLE [Concomitant]
  5. LOSARTAN POTASSIUM [Concomitant]

REACTIONS (3)
  - VASCULAR ANOMALY [None]
  - PAIN IN EXTREMITY [None]
  - HYPERTENSION [None]
